FAERS Safety Report 4937745-0 (Version None)
Quarter: 2006Q1

REPORT INFORMATION
  Report Type: 
  Country: None (occurrence: None)
  Receive Date: 20060302
  Receipt Date: 20060216
  Transmission Date: 20060701
  Serious: Yes (Hospitalization)
  Sender: FDA-Public Use
  Company Number: 2006025471

PATIENT
  Age: 67 Year
  Sex: Female
  Weight: 74 kg

DRUGS (7)
  1. SUTENT [Suspect]
     Indication: METASTATIC RENAL CELL CARCINOMA
     Dosage: 50 MG (50 MG, 1 IN 1 D), ORAL
     Route: 048
     Dates: start: 20060123
  2. HYDROCORTISONE [Concomitant]
  3. ALLOPURINOL [Concomitant]
  4. REPAGLINIDE (REPAGLINIDE) [Concomitant]
  5. MOVICOL (MACROGOL, POTASSIUM CHLORIDE, SODIUM BICARBONATE, SODIUM CHLO [Concomitant]
  6. BENZOCAINE (BENZOCAINE) [Concomitant]
  7. AMLODIPINE [Concomitant]

REACTIONS (1)
  - ANAL FISSURE [None]
